FAERS Safety Report 8011616-8 (Version None)
Quarter: 2011Q4

REPORT INFORMATION
  Report Type: 
  Country: None (occurrence: None)
  Receive Date: 20111228
  Receipt Date: 20111215
  Transmission Date: 20120403
  Serious: Yes (Life-Threatening, Hospitalization)
  Sender: FDA-Public Use
  Company Number: JP-ABBOTT-11P-087-0843209-00

PATIENT
  Age: 50 Year
  Sex: Female

DRUGS (7)
  1. JUZENTAIHOTO [Concomitant]
     Indication: PRODUCT USED FOR UNKNOWN INDICATION
     Route: 048
     Dates: start: 20110525, end: 20110919
  2. HESPANDER [Concomitant]
     Indication: MENORRHAGIA
     Route: 041
     Dates: start: 20110714, end: 20110720
  3. LEUPROLIDE ACETATE [Suspect]
     Indication: UTERINE LEIOMYOMA
     Route: 058
     Dates: start: 20110714, end: 20110817
  4. ADONA [Concomitant]
     Indication: MENORRHAGIA
     Route: 041
  5. CINAL [Concomitant]
     Indication: PRODUCT USED FOR UNKNOWN INDICATION
     Route: 048
     Dates: start: 20110525, end: 20110714
  6. TRANEXAMIC ACID [Concomitant]
     Indication: MENORRHAGIA
     Route: 041
  7. IRON SUCROSE [Concomitant]
     Indication: MENORRHAGIA
     Route: 041

REACTIONS (1)
  - GENITAL HAEMORRHAGE [None]
